FAERS Safety Report 4753230-3 (Version None)
Quarter: 2005Q3

REPORT INFORMATION
  Report Type: 
  Country: None (occurrence: None)
  Receive Date: 20050826
  Receipt Date: 20050623
  Transmission Date: 20060218
  Serious: Yes (Other)
  Sender: FDA-Public Use
  Company Number: JP-ABBOTT-05P-087-0304702-00

PATIENT
  Sex: Male

DRUGS (9)
  1. NORVIR [Suspect]
     Indication: HIV INFECTION
     Route: 048
     Dates: start: 20040917, end: 20040927
  2. LAMIVUDINE [Suspect]
     Indication: HIV INFECTION
     Route: 048
     Dates: start: 20040917
  3. STAVUDINE [Suspect]
     Indication: HIV INFECTION
     Route: 048
     Dates: start: 20041126
  4. EFAVIRENZ [Suspect]
     Indication: HIV INFECTION
     Dates: start: 20041005, end: 20041010
  5. ATAZANAVIR SULFATE [Suspect]
     Indication: HIV INFECTION
     Route: 048
     Dates: start: 20040917, end: 20040927
  6. TENOFOVIR [Suspect]
     Indication: HIV INFECTION
     Route: 048
     Dates: start: 20040917, end: 20041123
  7. FLUCONAZOLE [Suspect]
     Indication: MENINGITIS CRYPTOCOCCAL
     Route: 048
     Dates: start: 20040716, end: 20041106
  8. NEVIRAPINE [Concomitant]
     Indication: HIV INFECTION
     Route: 048
     Dates: start: 20041011, end: 20041025
  9. NEVIRAPINE [Concomitant]
     Route: 048
     Dates: start: 20041026

REACTIONS (5)
  - CYTOMEGALOVIRUS VIRAEMIA [None]
  - HEPATIC FUNCTION ABNORMAL [None]
  - KAPOSI'S SARCOMA [None]
  - RASH [None]
  - THROMBOCYTOPENIA [None]
